FAERS Safety Report 8241686-3 (Version None)
Quarter: 2012Q1

REPORT INFORMATION
  Report Type: 
  Country: None (occurrence: None)
  Receive Date: 20120328
  Receipt Date: 20120321
  Transmission Date: 20120608
  Serious: Yes (Hospitalization, Other)
  Sender: FDA-Public Use
  Company Number: MY-ASTRAZENECA-2012SE16381

PATIENT
  Age: 41 Year
  Sex: Male

DRUGS (5)
  1. BRILINTA [Suspect]
     Indication: ACUTE CORONARY SYNDROME
     Route: 048
     Dates: start: 20120213, end: 20120219
  2. ASPIRIN [Concomitant]
  3. LIPITOR [Concomitant]
  4. DOPAMINE HCL [Concomitant]
  5. IMIPENEM [Concomitant]
     Dosage: FOR FEW DAYS

REACTIONS (1)
  - PULMONARY HAEMORRHAGE [None]
